FAERS Safety Report 8390313-3 (Version None)
Quarter: 2012Q2

REPORT INFORMATION
  Report Type: 
  Country: None (occurrence: None)
  Receive Date: 20120515
  Receipt Date: 20120509
  Transmission Date: 20120825
  Serious: Yes (Hospitalization)
  Sender: FDA-Public Use
  Company Number: 2012SP024825

PATIENT
  Age: 72 Year
  Sex: Female

DRUGS (3)
  1. SPRYCEL [Suspect]
     Indication: GLIOBLASTOMA MULTIFORME
     Dosage: 150 MG;;PO
     Route: 048
     Dates: start: 20120315, end: 20120420
  2. TEMOZOLOMIDE [Suspect]
     Indication: GLIOBLASTOMA MULTIFORME
     Dosage: 75 MG/M2;;PO
     Route: 048
     Dates: start: 20120315
  3. PLACEBO [Suspect]
     Indication: GLIOBLASTOMA MULTIFORME
     Dosage: 150 MG;;PO
     Route: 048
     Dates: start: 20120315, end: 20120420

REACTIONS (7)
  - COGNITIVE DISORDER [None]
  - SOMNOLENCE [None]
  - ACTIVITIES OF DAILY LIVING IMPAIRED [None]
  - MOBILITY DECREASED [None]
  - DECREASED APPETITE [None]
  - LETHARGY [None]
  - DEPRESSED LEVEL OF CONSCIOUSNESS [None]
